FAERS Safety Report 25463200 (Version 1)
Quarter: 2025Q2

REPORT INFORMATION
  Report Type: Spontaneous
  Country: DE (occurrence: DE)
  Receive Date: 20250620
  Receipt Date: 20250620
  Transmission Date: 20250717
  Serious: Yes (Other)
  Sender: NOVARTIS
  Company Number: DE-002147023-NVSC2025DE098709

PATIENT
  Age: 65 Year
  Sex: Female

DRUGS (2)
  1. RUXOLITINIB [Suspect]
     Active Substance: RUXOLITINIB
     Indication: Graft versus host disease
     Dosage: 20 MG, QD (2X10MG/DAY)
     Route: 065
  2. CYCLOSPORINE [Suspect]
     Active Substance: CYCLOSPORINE
     Indication: Product used for unknown indication
     Route: 065

REACTIONS (7)
  - Lichenoid keratosis [Unknown]
  - Dry eye [Unknown]
  - Nausea [Unknown]
  - Skin lesion [Unknown]
  - Diarrhoea [Unknown]
  - Drug intolerance [Unknown]
  - Gastrointestinal disorder [Unknown]
